FAERS Safety Report 7477642-2 (Version None)
Quarter: 2011Q2

REPORT INFORMATION
  Report Type: 
  Country: None (occurrence: None)
  Receive Date: 20110513
  Receipt Date: 20110112
  Transmission Date: 20111010
  Serious: Yes (Hospitalization)
  Sender: FDA-Public Use
  Company Number: US-BAYER-201038303NA

PATIENT
  Age: 41 Year
  Sex: Female
  Weight: 83.9 kg

DRUGS (5)
  1. YAZ [Suspect]
     Dosage: UNK
     Route: 048
     Dates: start: 20070401, end: 20090501
  2. YASMIN [Suspect]
     Dosage: UNK
     Route: 048
     Dates: start: 20030101, end: 20060401
  3. MOTRIN [Concomitant]
  4. ASCORBIC ACID [Concomitant]
  5. ADVAIR DISKUS 100/50 [Concomitant]

REACTIONS (5)
  - GALLBLADDER DISORDER [None]
  - DYSPEPSIA [None]
  - CHOLECYSTITIS CHRONIC [None]
  - CHOLELITHIASIS [None]
  - ABDOMINAL PAIN [None]
